FAERS Safety Report 4753534-4 (Version None)
Quarter: 2005Q3

REPORT INFORMATION
  Report Type: 
  Country: None (occurrence: None)
  Receive Date: 20050824
  Receipt Date: 20050822
  Transmission Date: 20060218
  Serious: Yes (Other)
  Sender: FDA-Public Use
  Company Number: GB-2005-015226

PATIENT
  Age: 29 Year
  Sex: Female
  Weight: 54.1 kg

DRUGS (1)
  1. YASMIN [Suspect]
     Dosage: 1 TABS),  1X/DAY, ORAL
     Route: 048
     Dates: start: 20050201

REACTIONS (3)
  - ABORTION SPONTANEOUS [None]
  - PREGNANCY ON ORAL CONTRACEPTIVE [None]
  - UNINTENDED PREGNANCY [None]
